FAERS Safety Report 24531397 (Version 1)
Quarter: 2024Q4

REPORT INFORMATION
  Report Type: Report from Study
  Country: US (occurrence: US)
  Receive Date: 20241022
  Receipt Date: 20241022
  Transmission Date: 20250115
  Serious: No
  Sender: ROCHE
  Company Number: US-ROCHE-3275514

PATIENT
  Age: 11 Year
  Sex: Female

DRUGS (18)
  1. PULMOZYME [Suspect]
     Active Substance: DORNASE ALFA
     Indication: Pneumonia
     Dosage: NEBULIZE THE CONTENTS OF 1 VIAL(S) EVERY DAY
     Route: 055
  2. PULMOZYME [Suspect]
     Active Substance: DORNASE ALFA
     Indication: Bronchiectasis
  3. PULMOZYME [Suspect]
     Active Substance: DORNASE ALFA
     Indication: Bronchitis chronic
  4. PROVENTIL [Concomitant]
     Active Substance: ALBUTEROL
     Dosage: TAKE 1 AMPOULE BY NEBULIZATION EVERY 4 HOURS AS NEEDED FOR WHEEZING OR SHORTNESS OF AIR AND TWICE DA
     Route: 045
  5. PROAIR HFA [Concomitant]
     Active Substance: ALBUTEROL SULFATE
     Dosage: 108(90 BASE), 2-4 PUFFS INTO THE LUNGS EVERY 4 TO 6 HOURS AS NEEDED FOR WHEEZING OR SHORTNESS OF AIR
     Route: 045
  6. ZITHROMAX [Concomitant]
     Active Substance: AZITHROMYCIN DIHYDRATE
     Route: 048
  7. ZITHROMAX [Concomitant]
     Active Substance: AZITHROMYCIN DIHYDRATE
     Dosage: TAKE 2 TABLETS BY MOUTH ONCE DAILY
     Route: 048
  8. SYMBICORT [Concomitant]
     Active Substance: BUDESONIDE\FORMOTEROL FUMARATE DIHYDRATE
     Dosage: INHALE 2 PUFFS INTO THE LUNGS 2 TIMES DAILY.
     Route: 045
  9. OMNICEF [Concomitant]
     Active Substance: CEFDINIR
     Route: 065
  10. PULMOZYME [Concomitant]
     Active Substance: DORNASE ALFA
     Dosage: INHALE 2.5 MG INTO LUNGS DAILY
     Route: 045
  11. PEPCID [Concomitant]
     Active Substance: FAMOTIDINE
     Dosage: TAKE 1 TABLET BY MOUTH TWO TIMES A DAY
     Route: 048
  12. PEPCID [Concomitant]
     Active Substance: FAMOTIDINE
     Dosage: 8MG/ML, TAKE 2 ML BY MOUTH 2 TIMES DAILY
     Route: 048
  13. ALDARA [Concomitant]
     Active Substance: IMIQUIMOD
     Route: 065
  14. SINGULAIR [Concomitant]
     Active Substance: MONTELUKAST SODIUM
     Dosage: CHEW 1 TABLET BY MOUTH AT NIGHT
     Route: 048
  15. ZOFRAN [Concomitant]
     Active Substance: ONDANSETRON HYDROCHLORIDE
     Dosage: TAKE 1 TABLET BY MOUTH EVERY 8 HOURS AS NEEDED FOR NAUSEA.
     Route: 048
  16. DELTASONE [Concomitant]
     Active Substance: PREDNISONE
     Dosage: TAKE 1.5 TABLET BY MOUTH DAILY ON MONDAY, WEDNESDAY AND FRIDAY.
     Route: 048
  17. SODIUM CHLORIDE [Concomitant]
     Active Substance: SODIUM CHLORIDE
     Dosage: TAKE 4 ML BY NEBULIZATION TWICE DAILY.
     Route: 045
  18. SPIRIVA RESPIMAT [Concomitant]
     Active Substance: TIOTROPIUM BROMIDE
     Dosage: INHALE 2 PUFFS INTO THE LUNGS DAILY
     Route: 045

REACTIONS (2)
  - Illness [Unknown]
  - Off label use [Unknown]
